FAERS Safety Report 4354643-4 (Version None)
Quarter: 2004Q2

REPORT INFORMATION
  Report Type: 
  Country: None (occurrence: None)
  Receive Date: 20040506
  Receipt Date: 20040506
  Transmission Date: 20050107
  Serious: Yes (Death)
  Sender: FDA-Public Use
  Company Number: None

PATIENT
  Age: 64 Year
  Sex: Male
  Weight: 78.9259 kg

DRUGS (7)
  1. DOCETAXEL AVENTIS [Suspect]
     Indication: NON-SMALL CELL LUNG CANCER
     Dosage: 35 MG/MG2 D1 AND 8 Q 2 IV
     Route: 042
     Dates: start: 20040330, end: 20040420
  2. CARBOPLATIN [Suspect]
     Indication: NON-SMALL CELL LUNG CANCER
     Dosage: AUC 6 D1 Q 21 DA IV
     Route: 042
     Dates: start: 20040330, end: 20040420
  3. TENORETIC [Concomitant]
  4. LIPITOR [Concomitant]
  5. LOTREL [Concomitant]
  6. OXYCONTIN [Concomitant]
  7. PERCOCET [Concomitant]

REACTIONS (4)
  - CARDIO-RESPIRATORY ARREST [None]
  - DYSPNOEA EXACERBATED [None]
  - MALIGNANT NEOPLASM PROGRESSION [None]
  - PAIN EXACERBATED [None]
